FAERS Safety Report 17806776 (Version 2)
Quarter: 2020Q2

REPORT INFORMATION
  Report Type: Spontaneous
  Country: US (occurrence: US)
  Receive Date: 20200520
  Receipt Date: 20200521
  Transmission Date: 20200714
  Serious: No
  Sender: FDA-Public Use
  Company Number: US-TEVA-2020-US-1237030

PATIENT
  Age: 54 Year
  Sex: Male

DRUGS (1)
  1. ALBUTEROL SULFATE HFA [Suspect]
     Active Substance: ALBUTEROL SULFATE
     Indication: HYPERSENSITIVITY
     Dosage: STARTED TREATMENT WITH ALBUTEROL SULFATE HFA ABOUT 2 YEARS AGO
     Route: 065

REACTIONS (4)
  - Product use in unapproved indication [Unknown]
  - Dyspnoea [Unknown]
  - Throat irritation [Unknown]
  - Flatulence [Unknown]

NARRATIVE: CASE EVENT DATE: 20200510
